FAERS Safety Report 7828646-9 (Version None)
Quarter: 2011Q4

REPORT INFORMATION
  Report Type: 
  Country: None (occurrence: None)
  Receive Date: 20111020
  Receipt Date: 20111010
  Transmission Date: 20120403
  Serious: Yes (Other)
  Sender: FDA-Public Use
  Company Number: US-BAYER-2011-071665

PATIENT
  Age: 18 Year
  Sex: Female
  Weight: 66.213 kg

DRUGS (1)
  1. MIRENA [Suspect]
     Indication: CONTRACEPTION
     Dosage: 20 MCG/24HR, CONT
     Route: 015
     Dates: start: 20100701, end: 20110825

REACTIONS (2)
  - DEVICE DISLOCATION [None]
  - UTERINE PERFORATION [None]
